FAERS Safety Report 9850283 (Version 1)
Quarter: 2014Q1

REPORT INFORMATION
  Report Type: Report from Study
  Country: NL (occurrence: NL)
  Receive Date: 20140128
  Receipt Date: 20140128
  Transmission Date: 20141002
  Serious: Yes (Hospitalization, Other)
  Sender: FDA-Public Use
  Company Number: NL-GLAXOSMITHKLINE-B0962169A

PATIENT
  Age: 70 Year
  Sex: Male

DRUGS (6)
  1. PAZOPANIB [Suspect]
     Indication: RENAL CELL CARCINOMA
     Dosage: 800MG PER DAY
     Route: 048
     Dates: start: 20131224
  2. PAMIDRONATE [Concomitant]
     Dosage: 90MG PER DAY
     Dates: start: 20131224, end: 20131224
  3. METFORMINE [Concomitant]
     Dosage: 500MG TWICE PER DAY
  4. ATORVASTATINE [Concomitant]
     Dosage: 10MG PER DAY
  5. GALVUS [Concomitant]
     Dosage: 50MG TWICE PER DAY
     Route: 048
  6. ASPIRIN [Concomitant]

REACTIONS (3)
  - Hepatotoxicity [Unknown]
  - Malaise [Unknown]
  - Asthenia [Unknown]
